FAERS Safety Report 7035906-0 (Version None)
Quarter: 2010Q4

REPORT INFORMATION
  Report Type: 
  Country: None (occurrence: None)
  Receive Date: 20101008
  Receipt Date: 20100927
  Transmission Date: 20110411
  Serious: Yes (Hospitalization)
  Sender: FDA-Public Use
  Company Number: PHHY2010US61852

PATIENT

DRUGS (13)
  1. RECLAST [Suspect]
     Indication: OSTEOPOROSIS
     Dosage: 5 MG
     Dates: start: 20100824
  2. METOPROLOL TARTRATE [Concomitant]
     Indication: HYPERTENSION
     Dosage: 50 MG, BID
     Route: 048
  3. LOTREL [Concomitant]
     Indication: HYPERTENSION
     Dosage: 5/10 Q DAY
  4. PLAVIX [Concomitant]
     Dosage: 5 MG, QD
  5. LEVOXYL [Concomitant]
     Indication: HYPOTHYROIDISM
     Dosage: 5 MG, QD
  6. HYDROCHLOROTHIAZIDE [Concomitant]
     Indication: HYPERTENSION
     Dosage: 12.5 MG, QD
  7. METFORMIN [Concomitant]
     Indication: DIABETES MELLITUS
     Dosage: 500 MG, BID
  8. ZANTAC [Concomitant]
     Indication: GASTROOESOPHAGEAL REFLUX DISEASE
     Dosage: 150 MG, QD
  9. ASCORBIC ACID [Concomitant]
     Dosage: 500 MG, BID
  10. VITAMIN B-12 [Concomitant]
     Dosage: 500 MG, QD
  11. CALCIFEDIOL [Concomitant]
     Indication: OSTEOPOROSIS
     Dosage: 5000
  12. CRESTOR [Concomitant]
     Indication: HYPERLIPIDAEMIA
     Dosage: 40 MG, QD
  13. PROZAC [Concomitant]
     Indication: GASTROOESOPHAGEAL REFLUX DISEASE
     Dosage: 20 MG, QD

REACTIONS (7)
  - BLOOD GLUCOSE INCREASED [None]
  - DECREASED APPETITE [None]
  - FLUID OVERLOAD [None]
  - MALAISE [None]
  - NAUSEA [None]
  - RENAL FAILURE ACUTE [None]
  - WHITE BLOOD CELL COUNT INCREASED [None]
